FAERS Safety Report 20320014 (Version 1)
Quarter: 2022Q1

REPORT INFORMATION
  Report Type: Spontaneous
  Country: US (occurrence: US)
  Receive Date: 20220111
  Receipt Date: 20220111
  Transmission Date: 20220423
  Serious: Yes (Other)
  Sender: FDA-Public Use
  Company Number: US-CELLTRION INC.-2022US000032

PATIENT

DRUGS (2)
  1. TRUXIMA [Suspect]
     Active Substance: RITUXIMAB-ABBS
     Indication: Dermatomyositis
     Dosage: 1000 MG, EVERY 2 WEEKS X 2 INFUSIONS
     Dates: start: 20211029
  2. TRUXIMA [Suspect]
     Active Substance: RITUXIMAB-ABBS
     Indication: Polymyositis
     Dosage: 1000 MG, EVERY 2 WEEKS X 2 INFUSIONS
     Dates: start: 20211119

REACTIONS (3)
  - Dermatomyositis [Unknown]
  - Polymyositis [Unknown]
  - Off label use [Unknown]
